FAERS Safety Report 20166810 (Version 6)
Quarter: 2022Q1

REPORT INFORMATION
  Report Type: Spontaneous
  Country: US (occurrence: US)
  Receive Date: 20211209
  Receipt Date: 20220112
  Transmission Date: 20220423
  Serious: Yes (Death, Hospitalization, Other)
  Sender: FDA-Public Use
  Company Number: US-PFIZER INC-2020444248

PATIENT
  Age: 83 Year
  Sex: Male
  Weight: 79.365 kg

DRUGS (4)
  1. VYNDAQEL [Suspect]
     Active Substance: TAFAMIDIS MEGLUMINE
     Indication: Cardiac amyloidosis
     Dosage: 80 MG
  2. VYNDAQEL [Suspect]
     Active Substance: TAFAMIDIS MEGLUMINE
     Dosage: 80 MG, DAILY
  3. VYNDAQEL [Suspect]
     Active Substance: TAFAMIDIS MEGLUMINE
     Dosage: 20 MG
  4. VYNDAQEL [Suspect]
     Active Substance: TAFAMIDIS MEGLUMINE
     Dosage: 20 MG, 4X/DAY
     Route: 048
     Dates: start: 20191227, end: 20210817

REACTIONS (39)
  - End stage renal disease [Fatal]
  - Cardiac amyloidosis [Fatal]
  - Condition aggravated [Fatal]
  - Pain in extremity [Unknown]
  - Gait inability [Unknown]
  - Myelitis [Unknown]
  - Osteomyelitis [Unknown]
  - Escherichia infection [Unknown]
  - Infective myositis [Unknown]
  - Sepsis [Unknown]
  - Septic shock [Unknown]
  - Cellulitis [Unknown]
  - Atrial fibrillation [Unknown]
  - Acute kidney injury [Unknown]
  - Arteriosclerosis coronary artery [Unknown]
  - Escherichia sepsis [Unknown]
  - Chronic kidney disease [Unknown]
  - Hip arthroplasty [Unknown]
  - Muscular weakness [Unknown]
  - Gout [Unknown]
  - Aortic valve stenosis [Unknown]
  - Hypertension [Unknown]
  - Chronic obstructive pulmonary disease [Unknown]
  - Pleural effusion [Unknown]
  - Hyperlipidaemia [Unknown]
  - Vitamin B complex deficiency [Unknown]
  - Spinal osteoarthritis [Unknown]
  - Asthenia [Unknown]
  - Chronic left ventricular failure [Unknown]
  - Anaemia [Unknown]
  - Hyperparathyroidism [Unknown]
  - Sleep apnoea syndrome [Unknown]
  - Decreased appetite [Unknown]
  - Erythema [Unknown]
  - Intertrigo [Unknown]
  - Cough [Unknown]
  - Constipation [Unknown]
  - Pyrexia [Unknown]
  - Pain [Unknown]

NARRATIVE: CASE EVENT DATE: 20210521
